FAERS Safety Report 12203214 (Version 1)
Quarter: 2016Q1

REPORT INFORMATION
  Report Type: Spontaneous
  Country: US (occurrence: None)
  Receive Date: 20160321
  Receipt Date: 20160321
  Transmission Date: 20160526
  Serious: Yes (Hospitalization)
  Sender: FDA-Public Use
  Company Number: None

PATIENT
  Age: 44 Year
  Sex: Female
  Weight: 80.9 kg

DRUGS (1)
  1. BRISDELLE [Suspect]
     Active Substance: PAROXETINE MESYLATE
     Indication: HOT FLUSH
     Route: 048
     Dates: start: 20160309, end: 20160319

REACTIONS (8)
  - Dry mouth [None]
  - Blood creatine phosphokinase increased [None]
  - Oliguria [None]
  - No therapeutic response [None]
  - Paraesthesia [None]
  - Dizziness [None]
  - Constipation [None]
  - Chest pain [None]

NARRATIVE: CASE EVENT DATE: 20160319
